FAERS Safety Report 19846251 (Version 1)
Quarter: 2021Q3

REPORT INFORMATION
  Report Type: Spontaneous
  Country: IN (occurrence: IN)
  Receive Date: 20210917
  Receipt Date: 20210917
  Transmission Date: 20211014
  Serious: Yes (Hospitalization, Other)
  Sender: FDA-Public Use
  Company Number: IN-GLAXOSMITHKLINE-INCH2021GSK064172

PATIENT
  Age: 37 Year
  Sex: Female

DRUGS (4)
  1. DICLOFENAC [Suspect]
     Active Substance: DICLOFENAC
     Indication: DYSMENORRHOEA
     Dosage: UNK
  2. DICLOFENAC [Suspect]
     Active Substance: DICLOFENAC
     Indication: PRODUCT USED FOR UNKNOWN INDICATION
     Dosage: UNK
     Route: 030
  3. MEFENAMIC ACID. [Suspect]
     Active Substance: MEFENAMIC ACID
     Indication: DYSMENORRHOEA
     Dosage: UNK
  4. IBUPROFEN + PARACETAMOL [Suspect]
     Active Substance: ACETAMINOPHEN\IBUPROFEN
     Indication: DYSMENORRHOEA
     Dosage: UNK

REACTIONS (3)
  - Renal ischaemia [Unknown]
  - Flank pain [Recovered/Resolved]
  - Back pain [Recovered/Resolved]
